FAERS Safety Report 6821557-7 (Version None)
Quarter: 2010Q3

REPORT INFORMATION
  Report Type: 
  Country: None (occurrence: None)
  Receive Date: 20100707
  Receipt Date: 20090217
  Transmission Date: 20110219
  Serious: Yes (Other)
  Sender: FDA-Public Use
  Company Number: US-PFIZER INC-2009175002

PATIENT
  Sex: Male
  Weight: 67.12 kg

DRUGS (2)
  1. ZOLOFT [Suspect]
     Indication: DEPRESSION
     Route: 048
     Dates: start: 20010101, end: 20020101
  2. XANAX [Concomitant]

REACTIONS (3)
  - DEPRESSION [None]
  - PARANOIA [None]
  - WEIGHT DECREASED [None]
